FAERS Safety Report 9644041 (Version 5)
Quarter: 2013Q4

REPORT INFORMATION
  Report Type: Report from Study
  Country: BR (occurrence: BR)
  Receive Date: 20131024
  Receipt Date: 20131205
  Transmission Date: 20140711
  Serious: Yes (Hospitalization)
  Sender: FDA-Public Use
  Company Number: BR-B.I. PHARMACEUTICALS,INC./RIDGEFIELD-2013-BI-33231BI

PATIENT
  Age: 57 Year
  Sex: Male
  Weight: 51 kg

DRUGS (8)
  1. BIBW 2992 [Suspect]
     Indication: SQUAMOUS CELL CARCINOMA OF HEAD AND NECK
     Dosage: 50 MG
     Route: 048
     Dates: start: 20130218, end: 20131115
  2. DIPYRONE [Concomitant]
     Indication: ODYNOPHAGIA
     Dosage: STRENTH AND DAILY DOSE: 35 DROPS
     Route: 048
     Dates: start: 20130722, end: 20131017
  3. OMEPRAZOLE [Concomitant]
     Indication: PROPHYLAXIS AGAINST GASTROINTESTINAL ULCER
     Dosage: 20 MG
     Route: 048
     Dates: start: 20130730, end: 20131017
  4. NISTATIN [Concomitant]
     Indication: PROPHYLAXIS
     Dosage: DAILY DOSE: NOT APPLICABLE.
     Route: 061
     Dates: start: 20130905, end: 20130905
  5. NISTATIN [Concomitant]
     Dosage: DAILY DOSE: NOT APPLICABLE.
     Route: 061
     Dates: start: 20131106
  6. CLONAZEPAM [Concomitant]
     Indication: ANXIETY
     Dosage: 8 ANZ
     Route: 048
     Dates: start: 20131028
  7. TRAMADOLE [Concomitant]
     Indication: ODYNOPHAGIA
     Dosage: 20 ANZ
     Route: 048
     Dates: start: 20131107
  8. DIPINAL [Concomitant]
     Indication: ODYNOPHAGIA
     Dosage: 120 ANZ
     Route: 048
     Dates: start: 20131107

REACTIONS (7)
  - Fatigue [Recovered/Resolved]
  - Decreased appetite [Recovered/Resolved]
  - Lung infection [Recovered/Resolved]
  - Oral infection [Recovered/Resolved]
  - Odynophagia [Not Recovered/Not Resolved]
  - Dysphagia [Not Recovered/Not Resolved]
  - Diarrhoea [Recovered/Resolved]
